FAERS Safety Report 13926593 (Version 1)
Quarter: 2017Q3

REPORT INFORMATION
  Report Type: Spontaneous
  Country: NL (occurrence: NL)
  Receive Date: 20170831
  Receipt Date: 20170831
  Transmission Date: 20171127
  Serious: Yes (Hospitalization)
  Sender: FDA-Public Use
  Company Number: NL-MYLANLABS-2017M1053756

PATIENT
  Age: 3 Year
  Sex: Male
  Weight: 17 kg

DRUGS (2)
  1. RENNIE DEFLATINE [Suspect]
     Active Substance: CALCIUM CARBONATE\DIMETHICONE\MAGNESIUM CARBONATE
     Indication: PRODUCT USED FOR UNKNOWN INDICATION
     Dosage: AROUND 10 TABLETS OF CALCIUM CARBONATE/MAGNESIUM CARBONATE/SIMETHICONE; 680MG/80MG/25MG
     Route: 048
  2. LEVOTHYROXINE. [Suspect]
     Active Substance: LEVOTHYROXINE
     Indication: PRODUCT USED FOR UNKNOWN INDICATION
     Dosage: UP TO 60 TABLETS OF 150MCG EACH
     Route: 048

REACTIONS (8)
  - Tri-iodothyronine increased [Recovered/Resolved]
  - Tri-iodothyronine free increased [Recovered/Resolved]
  - Tachycardia [Recovered/Resolved]
  - Toxicity to various agents [Recovered/Resolved]
  - Accidental overdose [Recovered/Resolved]
  - Blood thyroid stimulating hormone decreased [Recovered/Resolved]
  - Hypertension [Recovered/Resolved]
  - Thyroxine free increased [Recovered/Resolved]
